FAERS Safety Report 6048046-4 (Version None)
Quarter: 2009Q1

REPORT INFORMATION
  Report Type: 
  Country: None (occurrence: None)
  Receive Date: 20090123
  Receipt Date: 20081222
  Transmission Date: 20090719
  Serious: Yes (Other)
  Sender: FDA-Public Use
  Company Number: US-PFIZER INC-2008093261

PATIENT
  Sex: Female

DRUGS (4)
  1. NARDIL [Suspect]
     Indication: DEPRESSION
     Dosage: 90 MG, UNK
     Route: 048
  2. NARDIL [Suspect]
     Indication: SCHIZOAFFECTIVE DISORDER
  3. PERPHENAZINE [Concomitant]
     Dosage: 8 MG, UNK
  4. CLONAZEPAM [Concomitant]
     Dosage: 2 MG, UNK

REACTIONS (2)
  - DRUG INEFFECTIVE [None]
  - MEMORY IMPAIRMENT [None]
